FAERS Safety Report 12345533 (Version 1)
Quarter: 2016Q2

REPORT INFORMATION
  Report Type: Spontaneous
  Country: US (occurrence: US)
  Receive Date: 20160509
  Receipt Date: 20160509
  Transmission Date: 20160815
  Serious: Yes (Other)
  Sender: FDA-Public Use
  Company Number: US-ROCHE-1753414

PATIENT

DRUGS (2)
  1. RITUXAN [Suspect]
     Active Substance: RITUXIMAB
     Indication: SYSTEMIC LUPUS ERYTHEMATOSUS
     Dosage: FOR 4 WEEKS, ONCOLOGY DOSE
     Route: 065
  2. RITUXAN [Suspect]
     Active Substance: RITUXIMAB
     Indication: POLYMYOSITIS

REACTIONS (5)
  - Antibody test positive [Unknown]
  - Facial paralysis [Unknown]
  - Antinuclear antibody positive [Unknown]
  - Weight increased [Unknown]
  - Swelling face [Unknown]
